FAERS Safety Report 5267449-9 (Version None)
Quarter: 2007Q1

REPORT INFORMATION
  Report Type: 
  Country: None (occurrence: None)
  Receive Date: 20070316
  Receipt Date: 20070306
  Transmission Date: 20070707
  Serious: Yes (Other)
  Sender: FDA-Public Use
  Company Number: CA-KINGPHARMUSA00001-K200700286

PATIENT

DRUGS (1)
  1. EPIPEN [Suspect]

REACTIONS (2)
  - ACCIDENTAL EXPOSURE [None]
  - LIMB INJURY [None]
